FAERS Safety Report 24462066 (Version 1)
Quarter: 2024Q4

REPORT INFORMATION
  Report Type: Report from Study
  Country: US (occurrence: US)
  Receive Date: 20241018
  Receipt Date: 20241018
  Transmission Date: 20250115
  Serious: No
  Sender: ROCHE
  Company Number: US-ROCHE-3567740

PATIENT
  Age: 23 Year
  Sex: Male
  Weight: 77.11 kg

DRUGS (6)
  1. RITUXAN [Suspect]
     Active Substance: RITUXIMAB
     Indication: Glomerulonephritis membranous
     Dosage: REMISSION IN EARLY 2020, RELAPSE IN -APR-2021 ONE DOSE, REMISSION, NOW RELAPSED AGAIN
     Route: 041
     Dates: start: 201902
  2. ALBUMIN HUMAN [Concomitant]
     Active Substance: ALBUMIN HUMAN
  3. LASIX [Concomitant]
     Active Substance: FUROSEMIDE
  4. CYCLOSPORINE [Concomitant]
     Active Substance: CYCLOSPORINE
  5. LISINOPRIL [Concomitant]
     Active Substance: LISINOPRIL
  6. HYDROCHLOROTHIAZIDE [Concomitant]
     Active Substance: HYDROCHLOROTHIAZIDE

REACTIONS (4)
  - Off label use [Unknown]
  - B-lymphocyte count decreased [Recovered/Resolved]
  - Autoantibody positive [Recovered/Resolved]
  - Hypertension [Unknown]

NARRATIVE: CASE EVENT DATE: 20190201
